FAERS Safety Report 8613465-6 (Version None)
Quarter: 2012Q3

REPORT INFORMATION
  Report Type: 
  Country: None (occurrence: None)
  Receive Date: 20120823
  Receipt Date: 20120809
  Transmission Date: 20120928
  Serious: Yes (Life-Threatening)
  Sender: FDA-Public Use
  Company Number: DE-MYLANLABS-2012S1016423

PATIENT
  Age: 45 Year
  Sex: Male

DRUGS (2)
  1. AZATHIOPRINE SODIUM [Suspect]
     Indication: CROHN'S DISEASE
     Route: 048
     Dates: start: 20080101, end: 20120101
  2. REMICADE [Suspect]
     Indication: CROHN'S DISEASE
     Route: 042
     Dates: start: 20090101, end: 20120101

REACTIONS (1)
  - PANCREATIC CARCINOMA METASTATIC [None]
